FAERS Safety Report 10154592 (Version 1)
Quarter: 2014Q2

REPORT INFORMATION
  Report Type: Spontaneous
  Country: US (occurrence: US)
  Receive Date: 20140506
  Receipt Date: 20140506
  Transmission Date: 20141212
  Serious: No
  Sender: FDA-Public Use
  Company Number: US-PFIZER INC-2014121828

PATIENT
  Age: 55 Year
  Sex: Female
  Weight: 68.03 kg

DRUGS (3)
  1. PREMPRO [Suspect]
     Indication: MENOPAUSAL SYMPTOMS
     Dosage: UNK, DAILY
     Dates: start: 20140201, end: 20140429
  2. SYMBICORT [Concomitant]
     Indication: ASTHMA
     Dosage: UNK, 2X/DAY
  3. VENTOLIN [Concomitant]
     Indication: ASTHMA
     Dosage: UNK, DAILY

REACTIONS (4)
  - Vision blurred [Recovering/Resolving]
  - Fatigue [Not Recovered/Not Resolved]
  - Depression [Not Recovered/Not Resolved]
  - Affect lability [Not Recovered/Not Resolved]
